FAERS Safety Report 5023520-8 (Version None)
Quarter: 2006Q2

REPORT INFORMATION
  Report Type: 
  Country: None (occurrence: None)
  Receive Date: 20060612
  Receipt Date: 20060517
  Transmission Date: 20061013
  Serious: Yes (Hospitalization)
  Sender: FDA-Public Use
  Company Number: GB-GLAXOSMITHKLINE-B0424416A

PATIENT
  Sex: Male

DRUGS (3)
  1. ZOVIRAX [Suspect]
     Dosage: 200MG FIVE TIMES PER DAY
     Route: 048
  2. ZOVIRAX [Suspect]
     Route: 061
  3. VARDENAFIL [Concomitant]
     Indication: ERECTILE DYSFUNCTION

REACTIONS (6)
  - ERYTHEMA [None]
  - PHOTOSENSITIVITY REACTION [None]
  - PRURITUS [None]
  - RASH [None]
  - SKIN DISORDER [None]
  - SKIN IRRITATION [None]
